FAERS Safety Report 8924536 (Version 1)
Quarter: 2012Q4

REPORT INFORMATION
  Report Type: Spontaneous
  Country: US (occurrence: None)
  Receive Date: 20121121
  Receipt Date: 20121121
  Transmission Date: 20130627
  Serious: Yes (Other)
  Sender: FDA-Public Use
  Company Number: None

PATIENT
  Age: 27 Year
  Sex: Male

DRUGS (36)
  1. SECRETIN [Suspect]
     Dates: start: 20121113
  2. ACYCLOVIR (ZOVIRAX) [Concomitant]
  3. ATROPINE-DIPENOXYLATE (LOMOTIL 0.025 MG-2.5 MG ORAL TABLET) [Concomitant]
  4. CLONAZEPAM (KLONOPIN) [Concomitant]
  5. COLESTIPOL (COLESTIPOL) [Concomitant]
  6. MAGNESIUM OXIDE [Concomitant]
  7. METHADONE [Concomitant]
  8. NYSTATIN (NYSTATIN 100,000 UNITS/ML ORAL SUSP) [Concomitant]
  9. NYSTATIN TOPICAL (NYSTATIN TOPICAL 100000 UNITS/GM POWDER) [Concomitant]
  10. OMEPRAZOLE (PRILOSEC) [Concomitant]
  11. PCA (HYDROMORPHONE) [Concomitant]
  12. POTASSIUM PHOSPHATE-SODIUM PHOSPHATE (POTASSIUM PHOSPHATE-SODIUM PHOSPHATE 250 MG-45 MG-29MG) [Concomitant]
  13. PREDNISONE [Concomitant]
  14. SODIUM BICARBONATE [Concomitant]
  15. SULFAMETHOXAZOLE-TRIMETHOPRIM (BACTRIM SS) [Concomitant]
  16. TACROLIMUS (PROFGRAF) [Concomitant]
  17. TESTOSTERONE TOPICAL 1% (TESTOSTERONE 1% TOPICAL GEL) [Concomitant]
  18. URSODIOL [Concomitant]
  19. DIPHENHYDRAMINE [Concomitant]
  20. EMOLLIENTS, TOPICAL (EUCERIN - CREAM) [Concomitant]
  21. NALOXONE (NARCAN) [Concomitant]
  22. NYSTATIN TOPICAL (NYSTATIN TOPICAL 100000 UNITS/GM CREAM) [Concomitant]
  23. ONDANSETRON (ZOFRAN) [Concomitant]
  24. PCA (HYDROMORPHONE) [Concomitant]
  25. PROMETHAZINE [Concomitant]
  26. SODIUM CHLORIDE NASAL (OCEAN NASA SPRAY 0.65% SOLUTION) [Concomitant]
  27. CIPROFLOXACIN [Concomitant]
  28. VANCOMYCIN [Concomitant]
  29. HYDROMORPHONE [Concomitant]
  30. SODIUM CHLORIDE [Concomitant]
  31. ACYCLOVIR (ZOVIRAX) [Concomitant]
  32. LINEZOID (ZYVOX) [Concomitant]
  33. MAGNESIUM CHLORIDE (MAGNESIUM CHLORIDE 64 MG ORAL TABLET, EXTENDED RELEASE) [Concomitant]
  34. MOMETASONE NASAL (NASONEX 50 MCG/INH SPRAY) [Concomitant]
  35. NYSTATIN [Concomitant]
  36. PYRIDOXINE (VITAMIN B6) [Concomitant]

REACTIONS (6)
  - Dyspnoea [None]
  - Hypoaesthesia [None]
  - Pruritus [None]
  - Pharyngeal oedema [None]
  - Chest pain [None]
  - Cardio-respiratory arrest [None]
